FAERS Safety Report 15253452 (Version 1)
Quarter: 2018Q3

REPORT INFORMATION
  Report Type: Report from Study
  Country: JP (occurrence: JP)
  Receive Date: 20180808
  Receipt Date: 20180808
  Transmission Date: 20181010
  Serious: Yes (Hospitalization, Other)
  Sender: FDA-Public Use
  Company Number: JP-SUN PHARMACEUTICAL INDUSTRIES LTD-2018RR-180761

PATIENT
  Sex: Female

DRUGS (8)
  1. TOPOTECAN [Suspect]
     Active Substance: TOPOTECAN HYDROCHLORIDE
     Indication: GERM CELL CANCER
     Dosage: 2 MG/M2/DAY FROM DAY ?6 TO ?3, 1 CYCLE
     Route: 065
  2. MELPHALAN. [Suspect]
     Active Substance: MELPHALAN
     Indication: GERM CELL CANCER
     Dosage: 70 MG/M2, DAILY, FROM DAY ?4 TO DAY ?3
     Route: 065
  3. CARBOPLATIN. [Suspect]
     Active Substance: CARBOPLATIN
     Dosage: 4 CYCLES
     Route: 065
  4. ETOPOSIDE. [Suspect]
     Active Substance: ETOPOSIDE
     Dosage: 4 CYCLES
     Route: 065
  5. ETOPOSIDE. [Suspect]
     Active Substance: ETOPOSIDE
     Indication: GERM CELL CANCER
     Dosage: 200 MG/M2, DAILY, FROM DAY ?8 TO DAY ?5
     Route: 065
  6. THIOTEPA. [Suspect]
     Active Substance: THIOTEPA
     Indication: GERM CELL CANCER
     Dosage: 200 MG/M2/DAY FROM DAY ?4 TO ?2, 1 CYCLE
     Route: 065
  7. CARBOPLATIN. [Suspect]
     Active Substance: CARBOPLATIN
     Indication: GERM CELL CANCER
     Dosage: 400 MG/M2, DAILY, FROM DAY ?8 TO DAY ?6
     Route: 065
  8. IFOSPHAMIDE [Suspect]
     Active Substance: IFOSFAMIDE
     Indication: GERM CELL CANCER
     Dosage: 4 CYCLES
     Route: 065

REACTIONS (5)
  - Febrile neutropenia [Recovering/Resolving]
  - Diabetes insipidus [Recovering/Resolving]
  - Mucosal inflammation [Recovering/Resolving]
  - Hypopituitarism [Recovering/Resolving]
  - Neoplasm recurrence [Unknown]
